FAERS Safety Report 4806522-3 (Version None)
Quarter: 2005Q4

REPORT INFORMATION
  Report Type: 
  Country: None (occurrence: None)
  Receive Date: 20051021
  Receipt Date: 20051012
  Transmission Date: 20060501
  Serious: Yes (Hospitalization)
  Sender: FDA-Public Use
  Company Number: SE-ABBOTT-05P-150-0313535-00

PATIENT
  Age: 33 Year
  Sex: Female

DRUGS (1)
  1. ERGENYL RETARD [Suspect]
     Indication: EPILEPSY
     Route: 048
     Dates: start: 19830101

REACTIONS (3)
  - DRUG TOXICITY [None]
  - LOSS OF CONSCIOUSNESS [None]
  - VENTRICULAR FIBRILLATION [None]
